FAERS Safety Report 7203403-5 (Version None)
Quarter: 2010Q4

REPORT INFORMATION
  Report Type: 
  Country: None (occurrence: None)
  Receive Date: 20101230
  Receipt Date: 20101224
  Transmission Date: 20110411
  Serious: Yes (Hospitalization)
  Sender: FDA-Public Use
  Company Number: JP-BAYER-200910909BYL

PATIENT
  Age: 78 Year
  Sex: Female
  Weight: 60 kg

DRUGS (6)
  1. NEXAVAR [Suspect]
     Indication: RENAL CELL CARCINOMA STAGE III
     Dosage: 800 MG, QD
     Route: 048
     Dates: start: 20090223, end: 20090311
  2. NEXAVAR [Suspect]
     Route: 048
     Dates: start: 20090420, end: 20090702
  3. NEXAVAR [Suspect]
     Dosage: 600 MG, QD
     Route: 048
     Dates: start: 20090703, end: 20090928
  4. NEXAVAR [Suspect]
     Dosage: 400 MG, QD
     Route: 048
     Dates: start: 20091210, end: 20100107
  5. NEXAVAR [Suspect]
     Dosage: 400 MG, QD
     Route: 048
     Dates: start: 20100121, end: 20100204
  6. NEXAVAR [Suspect]
     Dosage: 400 MG, QD
     Route: 048
     Dates: start: 20100218

REACTIONS (7)
  - ALOPECIA [None]
  - DIARRHOEA [None]
  - HYPOTHYROIDISM [None]
  - MALAISE [None]
  - OEDEMA PERIPHERAL [None]
  - PALMAR-PLANTAR ERYTHRODYSAESTHESIA SYNDROME [None]
  - PYREXIA [None]
